FAERS Safety Report 17616870 (Version 1)
Quarter: 2020Q1

REPORT INFORMATION
  Report Type: Spontaneous
  Country: US (occurrence: US)
  Receive Date: 20200331
  Receipt Date: 20200331
  Transmission Date: 20200409
  Serious: No
  Sender: FDA-Public Use
  Company Number: None

PATIENT
  Sex: Male

DRUGS (1)
  1. HUMIRA [Suspect]
     Active Substance: ADALIMUMAB
     Indication: PSORIASIS
     Dosage: ?          OTHER STRENGTH:40MG/0.8ML;?
     Route: 058
     Dates: start: 20170929

REACTIONS (3)
  - Injection site pain [None]
  - Device malfunction [None]
  - Injection site extravasation [None]
